FAERS Safety Report 7124327-8 (Version None)
Quarter: 2010Q4

REPORT INFORMATION
  Report Type: 
  Country: None (occurrence: None)
  Receive Date: 20101126
  Receipt Date: 20101118
  Transmission Date: 20110411
  Serious: Yes (Other)
  Sender: FDA-Public Use
  Company Number: PHHY2010JP71155

PATIENT
  Age: 15 Year
  Sex: Female

DRUGS (11)
  1. SANDIMMUNE [Suspect]
     Indication: STEM CELL TRANSPLANT
     Dosage: 3 MG/KG/DAY
     Route: 042
  2. SANDIMMUNE [Suspect]
     Indication: GRAFT VERSUS HOST DISEASE
  3. CYCLOPHOSPHAMIDE [Concomitant]
     Indication: STEM CELL TRANSPLANT
  4. IRRADIATION [Concomitant]
     Dosage: 12 GY, UNK
  5. MTX [Concomitant]
     Indication: PROPHYLAXIS AGAINST GRAFT VERSUS HOST DISEASE
     Dosage: 10 MG/M2, UNK
  6. MTX [Concomitant]
     Dosage: 7 MG/M2, UNK
  7. DASATINIB [Concomitant]
     Indication: ACUTE MYELOID LEUKAEMIA RECURRENT
  8. FLUDARABINE [Concomitant]
     Dosage: 25 MG/M2/DAY FOR 5 DAYS
  9. ETOPOSIDE [Concomitant]
     Dosage: 200 MG/M2/DAY FOR 4 DAYS
  10. CYTARABINE [Concomitant]
     Dosage: 140 MG/M2/DAY FOR 4 DAYS
  11. MELPHALAN HYDROCHLORIDE [Concomitant]
     Dosage: 140 MG/M2/DAY FOR 1 DAY

REACTIONS (21)
  - ABDOMINAL PAIN LOWER [None]
  - ACUTE GRAFT VERSUS HOST DISEASE IN INTESTINE [None]
  - ACUTE GRAFT VERSUS HOST DISEASE IN SKIN [None]
  - ACUTE LYMPHOCYTIC LEUKAEMIA RECURRENT [None]
  - ADENOVIRUS INFECTION [None]
  - APOPTOSIS [None]
  - CYSTITIS HAEMORRHAGIC [None]
  - CYTOMEGALOVIRUS INFECTION [None]
  - DIARRHOEA HAEMORRHAGIC [None]
  - DYSURIA [None]
  - HAEMATURIA [None]
  - HEADACHE [None]
  - LYMPHOCYTIC INFILTRATION [None]
  - MUCOSAL HAEMORRHAGE [None]
  - MYALGIA [None]
  - NAUSEA [None]
  - OEDEMA MUCOSAL [None]
  - POLLAKIURIA [None]
  - PYREXIA [None]
  - RASH [None]
  - STEM CELL TRANSPLANT [None]
